FAERS Safety Report 24551172 (Version 2)
Quarter: 2025Q1

REPORT INFORMATION
  Report Type: Spontaneous
  Country: DE (occurrence: DE)
  Receive Date: 20241025
  Receipt Date: 20250129
  Transmission Date: 20250409
  Serious: Yes (Death, Life-Threatening, Hospitalization, Other)
  Sender: MERCK
  Company Number: None

PATIENT
  Age: 63 Year
  Sex: Male
  Weight: 59 kg

DRUGS (2)
  1. KEYTRUDA [Suspect]
     Active Substance: PEMBROLIZUMAB
     Indication: Neoplasm malignant
     Dosage: 200 MILLIGRAM, QD
     Route: 042
     Dates: start: 20240829
  2. AXITINIB [Concomitant]
     Active Substance: AXITINIB
     Indication: Renal cancer metastatic
     Dosage: 3 MILLIGRAM, QOD
     Route: 048
     Dates: start: 20240829, end: 20240902

REACTIONS (2)
  - Renal cancer metastatic [Fatal]
  - Toxic epidermal necrolysis [Not Recovered/Not Resolved]

NARRATIVE: CASE EVENT DATE: 20240919
